FAERS Safety Report 6719515-6 (Version None)
Quarter: 2010Q2

REPORT INFORMATION
  Report Type: 
  Country: None (occurrence: None)
  Receive Date: 20100511
  Receipt Date: 20100504
  Transmission Date: 20101027
  Serious: Yes (Other)
  Sender: FDA-Public Use
  Company Number: BE-ROCHE-701455

PATIENT
  Age: 62 Year
  Sex: Male

DRUGS (1)
  1. XELODA [Suspect]
     Indication: COLORECTAL CANCER
     Dosage: FREQUENCY- BID ( 2 WEEK+1 WEEK REST)
     Route: 048
     Dates: start: 20091001, end: 20100401

REACTIONS (1)
  - HEPATIC STEATOSIS [None]
